FAERS Safety Report 7212918-5 (Version None)
Quarter: 2010Q4

REPORT INFORMATION
  Report Type: 
  Country: None (occurrence: None)
  Receive Date: 20101227
  Receipt Date: 20101215
  Transmission Date: 20110411
  Serious: Yes (Other)
  Sender: FDA-Public Use
  Company Number: 023455

PATIENT
  Age: 77 Year
  Sex: Female

DRUGS (11)
  1. KEPPRA [Suspect]
     Indication: CONVULSION
     Dosage: (1000 MG BID, 500 MG TABLETS (2 IN THE AM AND 2 IN THE PM))
     Dates: start: 20041201
  2. CLONAZEPAM [Concomitant]
  3. AMIODARONE [Concomitant]
  4. OMEPRAZOLE [Concomitant]
  5. POTASSIUM [Concomitant]
  6. HYDROCHLOROTHIAZIDE [Concomitant]
  7. MAGNESIUM OXIDE [Concomitant]
  8. TRAMADOL [Concomitant]
  9. HYDROCODONE [Concomitant]
  10. PROMETHAZINE [Concomitant]
  11. OS-CAL /00108001/ [Concomitant]

REACTIONS (4)
  - COLON CANCER [None]
  - MENINGIOMA [None]
  - NEOPLASM PROGRESSION [None]
  - OSTEOPOROSIS [None]
